FAERS Safety Report 5614121-9 (Version None)
Quarter: 2008Q1

REPORT INFORMATION
  Report Type: 
  Country: None (occurrence: None)
  Receive Date: 20080130
  Receipt Date: 20080122
  Transmission Date: 20080703
  Serious: Yes (Other)
  Sender: FDA-Public Use
  Company Number: LTI2008A00023

PATIENT
  Age: 59 Year
  Sex: Male

DRUGS (4)
  1. ACTOS [Suspect]
     Indication: DIABETES MELLITUS
     Dosage: 30 MG (30MG, 1 IN 1 D)
     Route: 048
     Dates: start: 20070904, end: 20070926
  2. METFORMIN HCL [Concomitant]
  3. AMARYL [Concomitant]
  4. VALSARTAN [Concomitant]

REACTIONS (2)
  - VISUAL ACUITY REDUCED [None]
  - VISUAL DISTURBANCE [None]
